FAERS Safety Report 18606476 (Version 1)
Quarter: 2020Q4

REPORT INFORMATION
  Report Type: Report from Study
  Country: None (occurrence: AR)
  Receive Date: 20201211
  Receipt Date: 20201211
  Transmission Date: 20210114
  Serious: Yes (Other)
  Sender: FDA-Public Use
  Company Number: AR-ABBVIE-20K-007-3370160-00

PATIENT
  Age: 24 Year
  Sex: Female

DRUGS (1)
  1. HUMIRA [Suspect]
     Active Substance: ADALIMUMAB
     Indication: HIDRADENITIS
     Route: 058
     Dates: start: 20191031, end: 202002

REACTIONS (9)
  - Caesarean section [Unknown]
  - Maternal exposure during pregnancy [Unknown]
  - Weight increased [Unknown]
  - Obstructed labour [Unknown]
  - Amniorrhoea [Unknown]
  - Hypersensitivity [Recovered/Resolved]
  - Live birth [Unknown]
  - Hypersensitivity [Not Recovered/Not Resolved]
  - Stress [Unknown]

NARRATIVE: CASE EVENT DATE: 2020
